FAERS Safety Report 25499316 (Version 1)
Quarter: 2025Q3

REPORT INFORMATION
  Report Type: Spontaneous
  Country: US (occurrence: US)
  Receive Date: 20250701
  Receipt Date: 20250701
  Transmission Date: 20251020
  Serious: Yes (Hospitalization)
  Sender: TEVA
  Company Number: US-TEVA-VS-3345515

PATIENT
  Age: 65 Year
  Sex: Female
  Weight: 68.039 kg

DRUGS (1)
  1. CEPHALEXIN [Suspect]
     Active Substance: CEPHALEXIN
     Indication: Cellulitis
     Dosage: TAKING ONE CAPSULE ON 2025-04-22 JUST BEFORE MIDNIGHT, 3 CAPSULES ON?2025-04-23?AND 3 CAPSULES ON...
     Route: 048
     Dates: start: 20250422, end: 20250424

REACTIONS (3)
  - Gastrointestinal haemorrhage [Recovered/Resolved]
  - Haematemesis [Recovered/Resolved]
  - Diarrhoea [Recovered/Resolved]

NARRATIVE: CASE EVENT DATE: 20250424
